FAERS Safety Report 8806442 (Version 2)
Quarter: 2013Q4

REPORT INFORMATION
  Report Type: Spontaneous
  Country: US (occurrence: US)
  Receive Date: 20120925
  Receipt Date: 20131009
  Transmission Date: 20140711
  Serious: Yes (Hospitalization)
  Sender: FDA-Public Use
  Company Number: US-BAYER-2012-098198

PATIENT
  Age: 45 Year
  Sex: Female

DRUGS (4)
  1. YAZ [Suspect]
  2. YASMIN [Suspect]
  3. OCELLA [Suspect]
  4. NAPROSYN [Concomitant]

REACTIONS (3)
  - Injury [None]
  - Pulmonary embolism [Recovered/Resolved]
  - Thrombophlebitis superficial [None]
